FAERS Safety Report 8461611-X (Version None)
Quarter: 2012Q2

REPORT INFORMATION
  Report Type: 
  Country: None (occurrence: None)
  Receive Date: 20120625
  Receipt Date: 20120617
  Transmission Date: 20120825
  Serious: Yes (Other)
  Sender: FDA-Public Use
  Company Number: PHHY2012CN038600

PATIENT
  Age: 85 Year
  Sex: Female

DRUGS (2)
  1. DIOVAN [Suspect]
     Indication: HYPERTENSION
     Dosage: 80MG DAILY
     Route: 048
     Dates: start: 20120401
  2. PLENDIL [Concomitant]
     Indication: HYPERTENSION
     Dosage: 5MG PER DAY
     Route: 048
     Dates: start: 20030101

REACTIONS (4)
  - APLASTIC ANAEMIA [None]
  - LEUKOPENIA [None]
  - ABDOMINAL DISCOMFORT [None]
  - THROMBOCYTOPENIA [None]
